FAERS Safety Report 24551344 (Version 2)
Quarter: 2024Q4

REPORT INFORMATION
  Report Type: Report from Study
  Country: CA (occurrence: CA)
  Receive Date: 20241025
  Receipt Date: 20241209
  Transmission Date: 20250114
  Serious: Yes (Other)
  Sender: ABBVIE
  Company Number: CA-ABBVIE-5814771

PATIENT
  Age: 66 Year
  Sex: Male

DRUGS (14)
  1. FOSCARBIDOPA\FOSLEVODOPA [Suspect]
     Active Substance: FOSCARBIDOPA\FOSLEVODOPA
     Indication: Parkinson^s disease
     Route: 058
     Dates: start: 20240606
  2. FOSCARBIDOPA\FOSLEVODOPA [Suspect]
     Active Substance: FOSCARBIDOPA\FOSLEVODOPA
     Route: 058
  3. FOSCARBIDOPA\FOSLEVODOPA [Suspect]
     Active Substance: FOSCARBIDOPA\FOSLEVODOPA
     Route: 058
  4. NEUPRO [Concomitant]
     Active Substance: ROTIGOTINE
     Indication: Product used for unknown indication
     Dosage: PATCH
  5. AMITRIPTYLINE [Concomitant]
     Active Substance: AMITRIPTYLINE
     Indication: Product used for unknown indication
  6. METFORMIN [Concomitant]
     Active Substance: METFORMIN HYDROCHLORIDE
     Indication: Product used for unknown indication
  7. PHENETICILLIN [Concomitant]
     Active Substance: PHENETICILLIN
     Indication: Product used for unknown indication
  8. ASPIRIN [Concomitant]
     Active Substance: ASPIRIN
     Indication: Product used for unknown indication
  9. CARBIDOPA\LEVODOPA [Concomitant]
     Active Substance: CARBIDOPA\LEVODOPA
     Indication: Product used for unknown indication
  10. JARDIANCE [Concomitant]
     Active Substance: EMPAGLIFLOZIN
     Indication: Product used for unknown indication
  11. ZOPICLONE [Concomitant]
     Active Substance: ZOPICLONE
     Indication: Product used for unknown indication
  12. ATORVASTATIN [Concomitant]
     Active Substance: ATORVASTATIN
     Indication: Product used for unknown indication
  13. JANUVIA [Concomitant]
     Active Substance: SITAGLIPTIN PHOSPHATE
     Indication: Product used for unknown indication
  14. HERBALS\SENNOSIDES [Concomitant]
     Active Substance: HERBALS\SENNOSIDES
     Indication: Product used for unknown indication

REACTIONS (21)
  - Sepsis [Recovered/Resolved]
  - Scar [Not Recovered/Not Resolved]
  - Cellulitis [Recovered/Resolved]
  - Infusion site erythema [Unknown]
  - Infusion site pain [Unknown]
  - Infusion site swelling [Unknown]
  - Incorrect dose administered [Unknown]
  - Injection site haemorrhage [Not Recovered/Not Resolved]
  - Blood glucose fluctuation [Recovered/Resolved]
  - On and off phenomenon [Recovered/Resolved]
  - Infection [Not Recovered/Not Resolved]
  - Catheter site infection [Not Recovered/Not Resolved]
  - Device breakage [Recovered/Resolved]
  - Catheter site related reaction [Recovered/Resolved]
  - Catheter site erythema [Not Recovered/Not Resolved]
  - Device breakage [Unknown]
  - Catheter site bruise [Unknown]
  - Nasopharyngitis [Recovered/Resolved]
  - Decreased activity [Recovered/Resolved]
  - Device issue [Unknown]
  - Catheter site irritation [Not Recovered/Not Resolved]

NARRATIVE: CASE EVENT DATE: 20240101
